FAERS Safety Report 21464380 (Version 1)
Quarter: 2022Q4

REPORT INFORMATION
  Report Type: Spontaneous
  Country: US (occurrence: None)
  Receive Date: 20221014
  Receipt Date: 20221014
  Transmission Date: 20230113
  Serious: No
  Sender: FDA-Public Use
  Company Number: None

PATIENT

DRUGS (3)
  1. XYLOCAINE MPF [Suspect]
     Active Substance: LIDOCAINE HYDROCHLORIDE
  2. XYLOCAINE WITH EPINEPHRINE [Suspect]
     Active Substance: EPINEPHRINE BITARTRATE\LIDOCAINE HYDROCHLORIDE
  3. XYLOCAINE(R) -MPF (LIDOCAINE HCI AND EPINEPHRINE) [Suspect]
     Active Substance: EPINEPHRINE BITARTRATE\LIDOCAINE HYDROCHLORIDE ANHYDROUS

REACTIONS (1)
  - Wrong product stored [None]
